FAERS Safety Report 4335270-1 (Version None)
Quarter: 2004Q2

REPORT INFORMATION
  Report Type: 
  Country: None (occurrence: None)
  Receive Date: 20040406
  Receipt Date: 20040226
  Transmission Date: 20050107
  Serious: Yes (Other)
  Sender: FDA-Public Use
  Company Number: 360214

PATIENT

DRUGS (1)
  1. FUZEON [Suspect]

REACTIONS (1)
  - INJECTION SITE REACTION [None]
